FAERS Safety Report 12095354 (Version 9)
Quarter: 2016Q2

REPORT INFORMATION
  Report Type: Spontaneous
  Country: GB (occurrence: GB)
  Receive Date: 20160219
  Receipt Date: 20160405
  Transmission Date: 20160815
  Serious: Yes (Hospitalization, Other)
  Sender: FDA-Public Use
  Company Number: GB-SA-2016SA029334

PATIENT
  Age: 36 Year
  Sex: Female

DRUGS (2)
  1. LEMTRADA [Suspect]
     Active Substance: ALEMTUZUMAB
     Indication: MULTIPLE SCLEROSIS
     Route: 042
     Dates: start: 20150319
  2. ACYCLOVIR. [Concomitant]
     Active Substance: ACYCLOVIR
     Indication: PROPHYLAXIS
     Dates: start: 2015

REACTIONS (8)
  - Allergic granulomatous angiitis [Recovering/Resolving]
  - Muscle spasms [Recovered/Resolved]
  - Neurological symptom [Not Recovered/Not Resolved]
  - Thyroid function test abnormal [Unknown]
  - Aphasia [Not Recovered/Not Resolved]
  - Inflammation [Unknown]
  - Disease progression [Unknown]
  - Partial seizures [Not Recovered/Not Resolved]

NARRATIVE: CASE EVENT DATE: 20160209
